FAERS Safety Report 17065236 (Version 2)
Quarter: 2019Q4

REPORT INFORMATION
  Report Type: Spontaneous
  Country: US (occurrence: US)
  Receive Date: 20191122
  Receipt Date: 20191122
  Transmission Date: 20200122
  Serious: Yes (Other)
  Sender: FDA-Public Use
  Company Number: US-GLAXOSMITHKLINE-US2019207559

PATIENT
  Age: 87 Year
  Sex: Female

DRUGS (3)
  1. TRELEGY ELLIPTA [Suspect]
     Active Substance: FLUTICASONE FUROATE\UMECLIDINIUM BROMIDE\VILANTEROL TRIFENATATE
     Indication: ASTHMA
     Dosage: 1 PUFF(S), 1D
     Route: 055
     Dates: start: 20191112
  2. INCRUSE ELLIPTA [Suspect]
     Active Substance: UMECLIDINIUM BROMIDE
  3. ADVAIR DISKUS [Suspect]
     Active Substance: FLUTICASONE PROPIONATE\SALMETEROL XINAFOATE
     Indication: ASTHMA
     Dosage: 1 PUFF(S), BID
     Route: 055

REACTIONS (8)
  - Intentional overdose [Unknown]
  - Asthenia [Not Recovered/Not Resolved]
  - Glaucoma [Unknown]
  - Cataract [Unknown]
  - Loss of personal independence in daily activities [Unknown]
  - Malaise [Not Recovered/Not Resolved]
  - Drug ineffective [Unknown]
  - Intentional product misuse [Unknown]

NARRATIVE: CASE EVENT DATE: 20191113
